FAERS Safety Report 19098782 (Version 4)
Quarter: 2021Q3

REPORT INFORMATION
  Report Type: Spontaneous
  Country: JP (occurrence: JP)
  Receive Date: 20210406
  Receipt Date: 20210728
  Transmission Date: 20211014
  Serious: Yes (Other)
  Sender: FDA-Public Use
  Company Number: JP-PFIZER INC-2021361889

PATIENT
  Age: 9 Decade
  Sex: Female
  Weight: 38 kg

DRUGS (6)
  1. ENALAPRIL [ENALAPRIL MALEATE] [Concomitant]
     Active Substance: ENALAPRIL MALEATE
     Dosage: UNK
  2. MEROPEN [Suspect]
     Active Substance: MEROPENEM
     Indication: URINARY TRACT INFECTION
     Dosage: 0.5 G, BID
     Route: 041
     Dates: start: 202007, end: 202007
  3. SPIRONOLACTONE. [Concomitant]
     Active Substance: SPIRONOLACTONE
     Dosage: UNK
  4. MEROPEN [Suspect]
     Active Substance: MEROPENEM
     Dosage: 0.5 G, 2X/DAY (DAILY DOSE 1G, REPORTED AS 1G/12 H)
     Route: 041
     Dates: start: 202007, end: 2020
  5. FUROSEMIDE. [Concomitant]
     Active Substance: FUROSEMIDE
     Dosage: UNK
  6. HANP [Suspect]
     Active Substance: CARPERITIDE
     Indication: CARDIAC FAILURE
     Dosage: 0.025 UG
     Route: 041
     Dates: start: 202007, end: 2020

REACTIONS (5)
  - C-reactive protein increased [Recovering/Resolving]
  - White blood cell count increased [Recovering/Resolving]
  - Hepatic enzyme increased [Recovering/Resolving]
  - Blood creatinine increased [Recovering/Resolving]
  - Blood urea increased [Recovering/Resolving]

NARRATIVE: CASE EVENT DATE: 202007
